FAERS Safety Report 20590146 (Version 2)
Quarter: 2022Q1

REPORT INFORMATION
  Report Type: Spontaneous
  Country: BR (occurrence: BR)
  Receive Date: 20220314
  Receipt Date: 20220316
  Transmission Date: 20220423
  Serious: Yes (Death, Hospitalization, Other)
  Sender: FDA-Public Use
  Company Number: BR-TAKEDA-2022TUS015460

PATIENT
  Sex: Female

DRUGS (9)
  1. LISDEXAMFETAMINE DIMESYLATE [Suspect]
     Active Substance: LISDEXAMFETAMINE DIMESYLATE
     Indication: Weight decreased
     Route: 065
  2. LISDEXAMFETAMINE DIMESYLATE [Suspect]
     Active Substance: LISDEXAMFETAMINE DIMESYLATE
     Indication: Attention deficit hyperactivity disorder
  3. HERBALS\GARCINIA CAMBOGIA FRUIT [Suspect]
     Active Substance: HERBALS\GARCINIA CAMBOGIA FRUIT
     Indication: Product used for unknown indication
     Dosage: UNK
     Route: 065
  4. BUPROPION [Suspect]
     Active Substance: BUPROPION
     Indication: Product used for unknown indication
     Dosage: UNK
     Route: 065
  5. ORLISTAT [Suspect]
     Active Substance: ORLISTAT
     Indication: Product used for unknown indication
     Dosage: UNK
     Route: 065
     Dates: start: 2020
  6. METHYLPHENIDATE HYDROCHLORIDE [Concomitant]
     Active Substance: METHYLPHENIDATE HYDROCHLORIDE
     Dosage: UNK
     Route: 065
  7. AMPHETAMINE [Concomitant]
     Active Substance: AMPHETAMINE
     Route: 065
  8. MELATONIN [Concomitant]
     Active Substance: MELATONIN
     Route: 065
  9. THEANINE [Concomitant]
     Active Substance: THEANINE
     Route: 065

REACTIONS (18)
  - Mental disorder [Fatal]
  - Encephalitis [Fatal]
  - Intracranial pressure increased [Fatal]
  - Acute kidney injury [Fatal]
  - Substance use [Fatal]
  - Hepatitis [Fatal]
  - Meningitis [Fatal]
  - Poisoning [Fatal]
  - Inflammation [Unknown]
  - Toxic encephalopathy [Unknown]
  - Infection [Unknown]
  - Fungal infection [Unknown]
  - Bacterial infection [Unknown]
  - Infection parasitic [Unknown]
  - Nausea [Unknown]
  - Liver disorder [Unknown]
  - Product use issue [Unknown]
  - Off label use [Unknown]
